FAERS Safety Report 23679862 (Version 3)
Quarter: 2025Q1

REPORT INFORMATION
  Report Type: Spontaneous
  Country: CA (occurrence: CA)
  Receive Date: 20240327
  Receipt Date: 20250213
  Transmission Date: 20250409
  Serious: Yes (Other)
  Sender: ANI
  Company Number: CA-ANIPHARMA-2024-CA-001808

PATIENT
  Age: 72 Year
  Sex: Female

DRUGS (21)
  1. CANDESARTAN [Suspect]
     Active Substance: CANDESARTAN
     Indication: Product used for unknown indication
  2. FLUTICASONE PROPIONATE [Suspect]
     Active Substance: FLUTICASONE PROPIONATE
  3. GABAPENTIN [Suspect]
     Active Substance: GABAPENTIN
  4. IRON [Suspect]
     Active Substance: IRON
  5. LIPITOR [Suspect]
     Active Substance: ATORVASTATIN CALCIUM
  6. MEPOLIZUMAB [Suspect]
     Active Substance: MEPOLIZUMAB
     Route: 058
  7. METFORMIN [Suspect]
     Active Substance: METFORMIN HYDROCHLORIDE
  8. ROPINIROLE HYDROCHLORIDE [Suspect]
     Active Substance: ROPINIROLE HYDROCHLORIDE
  9. SYNTHROID [Suspect]
     Active Substance: LEVOTHYROXINE SODIUM
  10. TEMAZEPAM [Suspect]
     Active Substance: TEMAZEPAM
  11. INFLUENZA VIRUS VACCINE [Suspect]
     Active Substance: INFLUENZA VIRUS VACCINE
  12. TIOTROPIUM BROMIDE MONOHYDRATE [Suspect]
     Active Substance: TIOTROPIUM BROMIDE MONOHYDRATE
  13. VENTOLIN [Suspect]
     Active Substance: ALBUTEROL SULFATE
  14. ZENHALE [Suspect]
     Active Substance: FORMOTEROL FUMARATE\MOMETASONE FUROATE
  15. TYLENOL [Concomitant]
     Active Substance: ACETAMINOPHEN
  16. CICLESONIDE [Suspect]
     Active Substance: CICLESONIDE
  17. LANSOPRAZOLE [Suspect]
     Active Substance: LANSOPRAZOLE
  18. AMITRIPTYLINE [Suspect]
     Active Substance: AMITRIPTYLINE
  19. BETAHISTINE [Suspect]
     Active Substance: BETAHISTINE
  20. CYMBALTA [Suspect]
     Active Substance: DULOXETINE HYDROCHLORIDE
  21. DETROL [Suspect]
     Active Substance: TOLTERODINE TARTRATE

REACTIONS (14)
  - Asthenia [Unknown]
  - Product use issue [Unknown]
  - Skin lesion [Not Recovered/Not Resolved]
  - Polyp [Not Recovered/Not Resolved]
  - Haemorrhoids [Recovering/Resolving]
  - Rectal haemorrhage [Not Recovered/Not Resolved]
  - Asthma [Unknown]
  - Atrial fibrillation [Unknown]
  - Back pain [Unknown]
  - Gastrooesophageal reflux disease [Unknown]
  - Hypersensitivity [Unknown]
  - Nasal congestion [Unknown]
  - Tachycardia [Unknown]
  - Weight decreased [Unknown]
